FAERS Safety Report 16739827 (Version 2)
Quarter: 2019Q3

REPORT INFORMATION
  Report Type: Spontaneous
  Country: US (occurrence: US)
  Receive Date: 20190826
  Receipt Date: 20190924
  Transmission Date: 20191005
  Serious: No
  Sender: FDA-Public Use
  Company Number: US-PHARMING-PHAUS2019000428

PATIENT

DRUGS (1)
  1. RUCONEST [Suspect]
     Active Substance: HUMAN C1-ESTERASE INHIBITOR
     Indication: HEREDITARY ANGIOEDEMA
     Dosage: 4200 IU, PRN
     Route: 042
     Dates: start: 2017

REACTIONS (2)
  - Hereditary angioedema [Unknown]
  - Tracheal stenosis [Not Recovered/Not Resolved]

NARRATIVE: CASE EVENT DATE: 20190702
